FAERS Safety Report 25393440 (Version 1)
Quarter: 2025Q2

REPORT INFORMATION
  Report Type: Spontaneous
  Country: US (occurrence: US)
  Receive Date: 20250604
  Receipt Date: 20250604
  Transmission Date: 20250717
  Serious: No
  Sender: ROCHE
  Company Number: US-ROCHE-10000300698

PATIENT
  Sex: Male

DRUGS (9)
  1. ERIVEDGE [Suspect]
     Active Substance: VISMODEGIB
     Indication: Basal cell carcinoma
     Route: 048
  2. ALBUTEROL SU AER 108 (90 [Concomitant]
  3. FLUTICASONE SUS 50MCG/AC [Concomitant]
  4. LISINOPRIL [Concomitant]
     Active Substance: LISINOPRIL
  5. MONTELUKAST SODIUM [Concomitant]
     Active Substance: MONTELUKAST SODIUM
  6. OMEPRAZOLE CPD 40MG [Concomitant]
  7. POTASSIUM CH TBC 20MEQ [Concomitant]
  8. PRAVASTATIN TAB 20MG [Concomitant]
  9. TRELEGY ELLI AEP 200-62,5 [Concomitant]

REACTIONS (1)
  - Myalgia [Not Recovered/Not Resolved]
